FAERS Safety Report 24094467 (Version 1)
Quarter: 2024Q3

REPORT INFORMATION
  Report Type: Report from Study
  Country: US (occurrence: None)
  Receive Date: 20240716
  Receipt Date: 20240716
  Transmission Date: 20241017
  Serious: Yes (Hospitalization)
  Sender: ASTRAZENECA
  Company Number: 2020SE25247

PATIENT
  Sex: Female
  Weight: 77.1 kg

DRUGS (5)
  1. LYNPARZA [Suspect]
     Active Substance: OLAPARIB
     Indication: Lung neoplasm malignant
     Route: 048
     Dates: start: 20190923
  2. NYSTATIN [Concomitant]
     Active Substance: NYSTATIN
  3. MORPHINE [Concomitant]
     Active Substance: MORPHINE
  4. MOVANTIK [Concomitant]
     Active Substance: NALOXEGOL OXALATE
  5. TEMOZOLOMIDE [Concomitant]
     Active Substance: TEMOZOLOMIDE

REACTIONS (2)
  - Abnormal behaviour [Unknown]
  - Brain neoplasm [Unknown]
